FAERS Safety Report 5117919-9 (Version None)
Quarter: 2006Q3

REPORT INFORMATION
  Report Type: 
  Country: None (occurrence: None)
  Receive Date: 20060925
  Receipt Date: 20060913
  Transmission Date: 20061208
  Serious: Yes (Other)
  Sender: FDA-Public Use
  Company Number: 220004L06JPN

PATIENT
  Age: 15 Year
  Sex: Female

DRUGS (2)
  1. SOMATROPIN (SOMATROPIN) [Suspect]
     Indication: GROWTH HORMONE DEFICIENCY
     Dosage: 5.25 MG, 1 IN 1 WEEKS, SUBCUTANEOUS, 10.5 MG, 1 IN 1 WEEKS,
     Route: 058
     Dates: start: 20011101
  2. SOMATROPIN (SOMATROPIN) [Suspect]
     Indication: GROWTH HORMONE DEFICIENCY
     Dosage: 5.25 MG, 1 IN 1 WEEKS, SUBCUTANEOUS, 10.5 MG, 1 IN 1 WEEKS,
     Route: 058
     Dates: start: 20020501

REACTIONS (2)
  - BLOOD ALKALINE PHOSPHATASE INCREASED [None]
  - HYPERPARATHYROIDISM [None]
